FAERS Safety Report 15459220 (Version 13)
Quarter: 2019Q4

REPORT INFORMATION
  Report Type: Spontaneous
  Country: US (occurrence: US)
  Receive Date: 20181003
  Receipt Date: 20191028
  Transmission Date: 20200122
  Serious: Yes (Life-Threatening, Other)
  Sender: FDA-Public Use
  Company Number: US-PFIZER INC-2018386562

PATIENT
  Age: 58 Year
  Sex: Male
  Weight: 94 kg

DRUGS (13)
  1. ATROPINE SULFATE/DIPHENOXYLATE HYDROCHLORIDE [Suspect]
     Active Substance: ATROPINE SULFATE\DIPHENOXYLATE HYDROCHLORIDE
     Indication: CROHN^S DISEASE
     Dosage: 1 DF, AS NEEDED
     Route: 048
     Dates: start: 2017, end: 201712
  2. LOPERAMIDE [Concomitant]
     Active Substance: LOPERAMIDE
     Indication: DIARRHOEA
     Dosage: 2 MG, 2X/DAY (2 MG, CAPSULE, ORALLY, TWICE A DAY AS NEEDED)
     Route: 048
  3. DICYCLOMINE [Concomitant]
     Active Substance: DICYCLOMINE HYDROCHLORIDE
     Indication: ABDOMINAL PAIN
     Dosage: 10 MG, 4X/DAY (10 MG, CAPSULE, ORALLY, 4 TIMES A DAY)
     Route: 048
  4. ATROPINE SULFATE/DIPHENOXYLATE HYDROCHLORIDE [Suspect]
     Active Substance: ATROPINE SULFATE\DIPHENOXYLATE HYDROCHLORIDE
     Dosage: 2 DF, 3X/DAY
     Dates: start: 201711
  5. MESALAMINE. [Concomitant]
     Active Substance: MESALAMINE
     Indication: FAECES SOFT
     Dosage: TAKING LIKE 1 WITH FOOD, AS NEEDED
  6. ATROPINE SULFATE/DIPHENOXYLATE HYDROCHLORIDE [Suspect]
     Active Substance: ATROPINE SULFATE\DIPHENOXYLATE HYDROCHLORIDE
     Indication: DIARRHOEA
     Dosage: 1 DF, AS NEEDED
     Route: 048
     Dates: start: 201711, end: 2017
  7. ATROPINE SULFATE/DIPHENOXYLATE HYDROCHLORIDE [Suspect]
     Active Substance: ATROPINE SULFATE\DIPHENOXYLATE HYDROCHLORIDE
     Dosage: UNK
     Dates: start: 201712
  8. PREDNISONE. [Concomitant]
     Active Substance: PREDNISONE
     Indication: DIARRHOEA
  9. ASACOL [Concomitant]
     Active Substance: MESALAMINE
     Indication: CROHN^S DISEASE
  10. ATROPINE SULFATE/DIPHENOXYLATE HYDROCHLORIDE [Suspect]
     Active Substance: ATROPINE SULFATE\DIPHENOXYLATE HYDROCHLORIDE
     Indication: FREQUENT BOWEL MOVEMENTS
     Dosage: 0.025 MG, 3X/DAY (0.025 MG, ORALLY, THREE TIMES A DAY AS NEEDED)
     Route: 048
  11. PREDNISONE. [Concomitant]
     Active Substance: PREDNISONE
     Indication: ABDOMINAL PAIN UPPER
     Dosage: 40 MG, DAILY (20 MG, TABLET, ORALLY, TWO TABLETS EVERY DAY)
     Route: 048
  12. MESALAMINE. [Concomitant]
     Active Substance: MESALAMINE
     Indication: CROHN^S DISEASE
  13. ASACOL [Concomitant]
     Active Substance: MESALAMINE
     Indication: FAECES SOFT
     Dosage: TAKING LIKE 1 WITH FOOD, AS NEEDED

REACTIONS (12)
  - Weight fluctuation [Unknown]
  - Dyspnoea [Not Recovered/Not Resolved]
  - Hypoaesthesia [Unknown]
  - Chest pain [Recovering/Resolving]
  - Cardiac disorder [Unknown]
  - Seizure like phenomena [Not Recovered/Not Resolved]
  - Product measured potency issue [Unknown]
  - Condition aggravated [Unknown]
  - Recalled product administered [Not Recovered/Not Resolved]
  - Palpitations [Recovering/Resolving]
  - Malaise [Unknown]
  - Heart rate increased [Unknown]

NARRATIVE: CASE EVENT DATE: 2017
